FAERS Safety Report 15656025 (Version 3)
Quarter: 2019Q1

REPORT INFORMATION
  Report Type: Report from Study
  Country: None (occurrence: NO)
  Receive Date: 20181126
  Receipt Date: 20190125
  Transmission Date: 20190417
  Serious: Yes (Hospitalization, Other)
  Sender: FDA-Public Use
  Company Number: NO-ABBVIE-18S-122-2566281-00

PATIENT
  Sex: Male

DRUGS (3)
  1. DUODOPA [Suspect]
     Active Substance: CARBIDOPA\LEVODOPA
     Indication: PRODUCT USED FOR UNKNOWN INDICATION
     Route: 050
     Dates: start: 2012, end: 2018
  2. DUODOPA [Suspect]
     Active Substance: CARBIDOPA\LEVODOPA
     Route: 050
     Dates: start: 201412, end: 20150310
  3. DUODOPA [Suspect]
     Active Substance: CARBIDOPA\LEVODOPA
     Route: 050
     Dates: start: 20150310, end: 20180914

REACTIONS (12)
  - Speech disorder [Unknown]
  - Intentional device misuse [Unknown]
  - Device issue [Unknown]
  - Chills [Unknown]
  - Cognitive disorder [Unknown]
  - Wound [Recovered/Resolved]
  - Medical device site necrosis [Recovered/Resolved]
  - Wrong technique in product usage process [Unknown]
  - Stoma site extravasation [Unknown]
  - Stoma site pain [Unknown]
  - Parkinson^s disease [Unknown]
  - Mental disorder [Unknown]
